FAERS Safety Report 7048605-6 (Version None)
Quarter: 2010Q4

REPORT INFORMATION
  Report Type: 
  Country: None (occurrence: None)
  Receive Date: 20101018
  Receipt Date: 20101014
  Transmission Date: 20110411
  Serious: Yes (Hospitalization, Other)
  Sender: FDA-Public Use
  Company Number: CN-BAYER-201010487GPV

PATIENT
  Age: 41 Year
  Sex: Male
  Weight: 77 kg

DRUGS (7)
  1. SORAFENIB [Suspect]
     Indication: HEPATIC NEOPLASM MALIGNANT
  2. PLACEBO TO TARCEVA [Suspect]
     Indication: HEPATIC NEOPLASM MALIGNANT
  3. ASCORBIC ACID [Concomitant]
     Indication: PROPHYLAXIS AGAINST GASTROINTESTINAL ULCER
     Route: 042
     Dates: start: 20100103
  4. VITAMIN B [Concomitant]
     Indication: PROPHYLAXIS AGAINST GASTROINTESTINAL ULCER
     Route: 042
     Dates: start: 20100103
  5. POTASSIUM CHLORIDE [Concomitant]
     Indication: MINERAL SUPPLEMENTATION
     Route: 042
     Dates: start: 20100103
  6. MORPHINE HYDROCHLORIDE [Concomitant]
     Indication: PAIN
     Route: 048
     Dates: start: 20100106, end: 20100112
  7. PANCREATIN [Concomitant]
     Indication: DECREASED APPETITE
     Route: 048
     Dates: start: 20100110, end: 20100112

REACTIONS (2)
  - EASTERN COOPERATIVE ONCOLOGY GROUP PERFORMANCE STATUS WORSENED [None]
  - PYREXIA [None]
